FAERS Safety Report 8413827-6 (Version None)
Quarter: 2012Q2

REPORT INFORMATION
  Report Type: 
  Country: None (occurrence: None)
  Receive Date: 20120605
  Receipt Date: 20120604
  Transmission Date: 20120825
  Serious: Yes (Other)
  Sender: FDA-Public Use
  Company Number: US-BAYER-2012-020561

PATIENT
  Age: 48 Year
  Sex: Female

DRUGS (5)
  1. BETASERON [Suspect]
     Dosage: UNK
     Dates: start: 20090203, end: 20091226
  2. BETASERON [Suspect]
     Dosage: UNK
     Dates: start: 20100928, end: 20111201
  3. FOLIC ACID [Concomitant]
     Indication: METHYLENETETRAHYDROFOLATE REDUCTASE POLYMORPHISM
  4. VITAMIN B-12 [Concomitant]
     Indication: VITAMIN B12 DEFICIENCY
  5. BETASERON [Suspect]
     Indication: MULTIPLE SCLEROSIS
     Dosage: UNK
     Dates: start: 20081103, end: 20090105

REACTIONS (6)
  - TINNITUS [None]
  - PARAESTHESIA [None]
  - HEADACHE [None]
  - THYROID CANCER [None]
  - DIZZINESS [None]
  - VERTIGO [None]
